FAERS Safety Report 13654640 (Version 3)
Quarter: 2017Q4

REPORT INFORMATION
  Report Type: Report from Study
  Country: JP (occurrence: JP)
  Receive Date: 20170615
  Receipt Date: 20171010
  Transmission Date: 20180320
  Serious: Yes (Hospitalization, Disabling, Other)
  Sender: FDA-Public Use
  Company Number: JP-BRISTOL-MYERS SQUIBB COMPANY-BMS-2017-052230

PATIENT
  Age: 77 Year
  Sex: Female

DRUGS (3)
  1. TS-1 [Concomitant]
     Active Substance: GIMERACIL\OTERACIL\TEGAFUR
     Indication: PRODUCT USED FOR UNKNOWN INDICATION
     Dosage: 100 MG,DAY
     Route: 065
     Dates: start: 20160308, end: 20160404
  2. NIVOLUMAB [Suspect]
     Active Substance: NIVOLUMAB
     Indication: NON-SMALL CELL LUNG CANCER RECURRENT
     Dosage: 3 MG/KG, UNK
     Route: 041
     Dates: start: 20160202, end: 20160509
  3. IRESSA [Concomitant]
     Active Substance: GEFITINIB
     Indication: PRODUCT USED FOR UNKNOWN INDICATION
     Dosage: 250 MG, DAY
     Route: 065
     Dates: start: 20160525

REACTIONS (5)
  - Metastases to central nervous system [Not Recovered/Not Resolved]
  - Urinary tract infection [Recovered/Resolved]
  - Clavicle fracture [Not Recovered/Not Resolved]
  - Malignant neoplasm progression [Unknown]
  - Fall [Not Recovered/Not Resolved]

NARRATIVE: CASE EVENT DATE: 20160209
